FAERS Safety Report 11891876 (Version 1)
Quarter: 2016Q1

REPORT INFORMATION
  Report Type: Spontaneous
  Country: AR (occurrence: AR)
  Receive Date: 20160106
  Receipt Date: 20160106
  Transmission Date: 20160526
  Serious: Yes (Other)
  Sender: FDA-Public Use
  Company Number: CHPA2015AR015457

PATIENT
  Sex: Female

DRUGS (1)
  1. OTRIVINA [Suspect]
     Active Substance: XYLOMETAZOLINE
     Indication: DYSPNOEA
     Dosage: AT NIGHT
     Route: 065

REACTIONS (5)
  - Product use issue [Unknown]
  - Drug dependence [Not Recovered/Not Resolved]
  - Dyspnoea [Unknown]
  - Polyp [Unknown]
  - Face injury [Unknown]

NARRATIVE: CASE EVENT DATE: 1995
